FAERS Safety Report 25323449 (Version 1)
Quarter: 2025Q2

REPORT INFORMATION
  Report Type: Spontaneous
  Country: US (occurrence: US)
  Receive Date: 20250516
  Receipt Date: 20250516
  Transmission Date: 20250716
  Serious: Yes (Other)
  Sender: BAYER HEALTHCARE LLC
  Company Number: US-BAYER-2025A065068

PATIENT

DRUGS (2)
  1. AFRIN NO DRIP ORIGINAL PUMP MIST [Suspect]
     Active Substance: OXYMETAZOLINE HYDROCHLORIDE
     Indication: Mastication disorder
  2. AFRIN NO DRIP ORIGINAL PUMP MIST [Suspect]
     Active Substance: OXYMETAZOLINE HYDROCHLORIDE
     Indication: Choking

REACTIONS (5)
  - Drug dependence [Unknown]
  - Nasal operation [Unknown]
  - Choking [Unknown]
  - Drug effective for unapproved indication [Unknown]
  - Mastication disorder [Unknown]
